FAERS Safety Report 8881104 (Version 2)
Quarter: 2014Q3

REPORT INFORMATION
  Report Type: Spontaneous
  Country: US (occurrence: US)
  Receive Date: 20121101
  Receipt Date: 20140805
  Transmission Date: 20150326
  Serious: Yes (Hospitalization, Other)
  Sender: FDA-Public Use
  Company Number: US-009507513-2010SP012807

PATIENT
  Sex: Female
  Weight: 54.43 kg

DRUGS (2)
  1. LEXAPRO [Concomitant]
     Active Substance: ESCITALOPRAM OXALATE
     Indication: DEPRESSION
     Dosage: UPDATE (29SEP2010) REPORTED 20MG/DAILY
     Dates: start: 200711
  2. NUVARING [Suspect]
     Active Substance: ETHINYL ESTRADIOL\ETONOGESTREL
     Indication: CONTRACEPTION
     Dosage: UNK
     Route: 067
     Dates: start: 20071120, end: 200803

REACTIONS (12)
  - Major depression [Not Recovered/Not Resolved]
  - Anxiety [Unknown]
  - Dysmenorrhoea [Unknown]
  - Abdominal pain [Unknown]
  - Abdominal pain lower [Unknown]
  - Pain in extremity [Unknown]
  - Suicide attempt [Unknown]
  - Pulmonary embolism [Unknown]
  - Medical device discomfort [Unknown]
  - Headache [Unknown]
  - Chest pain [Unknown]
  - Suicidal ideation [Not Recovered/Not Resolved]

NARRATIVE: CASE EVENT DATE: 20071229
